FAERS Safety Report 7278762-8 (Version None)
Quarter: 2011Q1

REPORT INFORMATION
  Report Type: 
  Country: None (occurrence: None)
  Receive Date: 20110207
  Receipt Date: 20110201
  Transmission Date: 20110831
  Serious: Yes (Other)
  Sender: FDA-Public Use
  Company Number: JP-PFIZER INC-2010147797

PATIENT
  Age: 76 Year
  Sex: Male
  Weight: 47 kg

DRUGS (3)
  1. RIFAMPICIN [Concomitant]
     Dosage: UNK
     Route: 065
     Dates: start: 20100918, end: 20101019
  2. GENTAMICIN [Concomitant]
     Dosage: UNK
     Route: 065
     Dates: start: 20100918, end: 20101025
  3. ZYVOX [Suspect]
     Indication: DEVICE RELATED INFECTION
     Dosage: 600 MG, 2X/DAY
     Route: 041
     Dates: start: 20101018, end: 20101114

REACTIONS (5)
  - HYPONATRAEMIA [None]
  - HYPOKALAEMIA [None]
  - DIZZINESS [None]
  - HYPERLACTACIDAEMIA [None]
  - HYPOCHLORAEMIA [None]
